FAERS Safety Report 20670197 (Version 3)
Quarter: 2023Q2

REPORT INFORMATION
  Report Type: Report from Study
  Country: DE (occurrence: DE)
  Receive Date: 20220404
  Receipt Date: 20230609
  Transmission Date: 20230721
  Serious: Yes (Hospitalization)
  Sender: FDA-Public Use
  Company Number: DE-TAKEDA-2022TUS020987

PATIENT
  Age: 24 Year
  Sex: Male

DRUGS (10)
  1. IDURSULFASE [Suspect]
     Active Substance: IDURSULFASE
     Indication: Mucopolysaccharidosis II
     Dosage: 0.5 MILLIGRAM/KILOGRAM, 1/WEEK
     Route: 042
     Dates: start: 20050314
  2. METHYLPHENIDATE [Concomitant]
     Active Substance: METHYLPHENIDATE
     Indication: Abnormal behaviour
     Dosage: UNK
     Route: 048
     Dates: start: 200801, end: 2016
  3. LORATADINE [Concomitant]
     Active Substance: LORATADINE
     Indication: Premedication
     Dosage: UNK
     Route: 048
     Dates: start: 200911, end: 20120328
  4. DUAC ACNE [Concomitant]
     Indication: Acne
     Dosage: UNK
     Route: 062
     Dates: start: 201011, end: 20120328
  5. IBUPROFEN [Concomitant]
     Active Substance: IBUPROFEN
     Indication: Sacral pain
     Dosage: UNK
     Route: 048
     Dates: start: 2013, end: 201404
  6. ASPIRIN [Concomitant]
     Active Substance: ASPIRIN
     Indication: Ischaemic stroke
     Dosage: UNK
     Route: 048
     Dates: start: 201406, end: 2016
  7. HEPARIN [Concomitant]
     Active Substance: HEPARIN SODIUM
     Indication: Ischaemic stroke
     Dosage: UNK
     Route: 058
     Dates: start: 201406, end: 201407
  8. VITAMIN B6 [Concomitant]
     Active Substance: PYRIDOXINE HYDROCHLORIDE
     Indication: Ischaemic stroke
     Dosage: UNK
     Route: 048
     Dates: start: 201406
  9. FOLIC ACID [Concomitant]
     Active Substance: FOLIC ACID
     Indication: Ischaemic stroke
     Dosage: UNK
     Route: 048
     Dates: start: 201406
  10. PANTOPRAZOLE SODIUM [Concomitant]
     Active Substance: PANTOPRAZOLE SODIUM
     Indication: Gastric disorder
     Dosage: UNK
     Route: 048
     Dates: start: 2016

REACTIONS (1)
  - Medical device site ulcer [Recovered/Resolved with Sequelae]

NARRATIVE: CASE EVENT DATE: 20210331
